FAERS Safety Report 11308293 (Version 1)
Quarter: 2015Q3

REPORT INFORMATION
  Report Type: Spontaneous
  Country: GB (occurrence: GB)
  Receive Date: 20150724
  Receipt Date: 20150724
  Transmission Date: 20151125
  Serious: Yes (Hospitalization)
  Sender: FDA-Public Use
  Company Number: GB-SUN PHARMACEUTICAL INDUSTRIES LTD-2015RR-100667

PATIENT

DRUGS (3)
  1. PARACETAMOL [Concomitant]
     Active Substance: ACETAMINOPHEN
     Indication: PRODUCT USED FOR UNKNOWN INDICATION
     Route: 065
  2. IBUPROFEN. [Concomitant]
     Active Substance: IBUPROFEN
     Indication: PRODUCT USED FOR UNKNOWN INDICATION
     Route: 065
  3. CODEINE TABLETS [Suspect]
     Active Substance: CODEINE
     Indication: PRODUCT USED FOR UNKNOWN INDICATION
     Route: 048
     Dates: start: 20140805, end: 20140814

REACTIONS (22)
  - Confusional state [Recovered/Resolved]
  - Heart rate increased [Unknown]
  - Dysarthria [Recovered/Resolved]
  - Vomiting [Unknown]
  - Flushing [Unknown]
  - Respiratory depression [Unknown]
  - Mydriasis [Recovered/Resolved]
  - Hypertension [Unknown]
  - Hypoaesthesia [Unknown]
  - Feeling cold [Unknown]
  - Asthenia [Unknown]
  - Lethargy [Unknown]
  - Arthralgia [Unknown]
  - Abdominal pain upper [Unknown]
  - Feeling abnormal [Unknown]
  - Personality change [Recovered/Resolved]
  - Agitation [Unknown]
  - Loss of consciousness [Unknown]
  - Cognitive disorder [Recovered/Resolved]
  - Balance disorder [Recovered/Resolved]
  - Decreased appetite [Unknown]
  - Headache [Recovered/Resolved]

NARRATIVE: CASE EVENT DATE: 20140806
